FAERS Safety Report 4473879-5 (Version None)
Quarter: 2004Q4

REPORT INFORMATION
  Report Type: 
  Country: None (occurrence: None)
  Receive Date: 20041008
  Receipt Date: 20041008
  Transmission Date: 20050328
  Serious: Yes (Life-Threatening, Hospitalization)
  Sender: FDA-Public Use
  Company Number: None

PATIENT
  Age: 57 Year
  Sex: Male
  Weight: 80.2 kg

DRUGS (24)
  1. SIMVASTATIN [Suspect]
     Dosage: 80 MG TAB  ONE HALF TABLET BY MOUTH AT ACTIVE BEDTIME
     Route: 048
     Dates: start: 20040723
  2. HIV MEDICATIONS [Suspect]
  3. BACITRACIN-NEOMYCIN-POLYMYXIN [Concomitant]
  4. CLOPIDOGREL BISULFATE [Concomitant]
  5. DIDANOSINE [Concomitant]
  6. FOSINOPRIL NA [Concomitant]
  7. GLYBURIDE [Concomitant]
  8. HC / NEOMYCIN / POLYMYXIN [Concomitant]
  9. IMIQUIMOD [Concomitant]
  10. INDINAVIR SULFATE [Concomitant]
  11. HUMULIN N [Concomitant]
  12. LAMIVUDINE [Concomitant]
  13. METOPROLOL TARTRATE [Concomitant]
  14. MULTI-VITAMIN [Concomitant]
  15. NIACIN [Concomitant]
  16. OMEPRAZOLE [Concomitant]
  17. PRECISION XTRA (GLUCOSE) TEST STRIP [Concomitant]
  18. RITONAVIR [Concomitant]
  19. SILDENAFIL CITRATE [Concomitant]
  20. SIMVASTATIN [Concomitant]
  21. THIAMINE HCL [Concomitant]
  22. VITAMIN E [Concomitant]
  23. METFORMIN HCL [Concomitant]
  24. ASPIRIN [Concomitant]

REACTIONS (4)
  - BEDRIDDEN [None]
  - DECREASED APPETITE [None]
  - POLLAKIURIA [None]
  - RHABDOMYOLYSIS [None]
